FAERS Safety Report 6019698-X (Version None)
Quarter: 2008Q4

REPORT INFORMATION
  Report Type: 
  Country: None (occurrence: None)
  Receive Date: 20081224
  Receipt Date: 20081216
  Transmission Date: 20090506
  Serious: Yes (Other)
  Sender: FDA-Public Use
  Company Number: FR-WATSON-2008-07387

PATIENT
  Age: 37 Year
  Sex: Female

DRUGS (1)
  1. ERGOTAMINE [Suspect]
     Indication: MIGRAINE
     Dosage: 2 MG, SINGLE
     Route: 048

REACTIONS (1)
  - GRAND MAL CONVULSION [None]
